FAERS Safety Report 4334398-X (Version None)
Quarter: 2004Q1

REPORT INFORMATION
  Report Type: 
  Country: None (occurrence: None)
  Receive Date: 20040326
  Receipt Date: 20040213
  Transmission Date: 20041129
  Serious: No
  Sender: FDA-Public Use
  Company Number: US-JNJFOC-20040203292

PATIENT
  Age: 78 Year
  Sex: Female

DRUGS (7)
  1. REMINYL [Suspect]
     Indication: DEMENTIA ALZHEIMER'S TYPE
     Dosage: 4 MG, 2 IN 24 HOUR, ORAL
     Route: 048
     Dates: start: 20040116
  2. RISPERDAL [Concomitant]
  3. VISOTRAST (SODIUM AMIDOTRI ZOATE) UNSPECIFIED [Concomitant]
  4. CALCIUM WITH VITAMIN D (CALCIUM WITH VITAMIN D) [Concomitant]
  5. TYLENOL PM (TYLENOL PM) [Concomitant]
  6. SENOKOT [Concomitant]
  7. NORVASC [Concomitant]

REACTIONS (3)
  - AGGRESSION [None]
  - AGITATION [None]
  - ANXIETY [None]
